FAERS Safety Report 25419248 (Version 1)
Quarter: 2025Q2

REPORT INFORMATION
  Report Type: Spontaneous
  Country: JP (occurrence: JP)
  Receive Date: 20250610
  Receipt Date: 20250610
  Transmission Date: 20250716
  Serious: Yes (Death)
  Sender: SHIONOGI
  Company Number: JP-shionogi-202500005767

PATIENT
  Sex: Male

DRUGS (1)
  1. CEFIDEROCOL [Suspect]
     Active Substance: CEFIDEROCOL
     Indication: Enterobacter sepsis
     Route: 065

REACTIONS (1)
  - Systemic candida [Fatal]
